FAERS Safety Report 22350690 (Version 1)
Quarter: 2023Q2

REPORT INFORMATION
  Report Type: Spontaneous
  Country: DE (occurrence: DE)
  Receive Date: 20230522
  Receipt Date: 20230522
  Transmission Date: 20230721
  Serious: Yes (Other)
  Sender: FDA-Public Use
  Company Number: DE-JNJFOC-20230549934

PATIENT
  Sex: Male

DRUGS (8)
  1. DARZALEX [Suspect]
     Active Substance: DARATUMUMAB
     Indication: Primary amyloidosis
     Route: 065
  2. VELCADE [Suspect]
     Active Substance: BORTEZOMIB
     Indication: Primary amyloidosis
     Route: 065
  3. CYCLOPHOSPHAMIDE [Suspect]
     Active Substance: CYCLOPHOSPHAMIDE
     Indication: Product used for unknown indication
     Route: 065
  4. DEXAMETHASONE [Suspect]
     Active Substance: DEXAMETHASONE
     Route: 065
  5. TORSEMIDE [Concomitant]
     Active Substance: TORSEMIDE
  6. PAROXETINE [Concomitant]
     Active Substance: PAROXETINE
  7. ATORVASTATIN [Concomitant]
     Active Substance: ATORVASTATIN
  8. ENOXAPARIN SODIUM [Concomitant]
     Active Substance: ENOXAPARIN SODIUM
     Dosage: 40

REACTIONS (2)
  - Nephrotic syndrome [Not Recovered/Not Resolved]
  - Muscle spasms [Unknown]
